FAERS Safety Report 23895962 (Version 1)
Quarter: 2024Q2

REPORT INFORMATION
  Report Type: Spontaneous
  Country: CA (occurrence: CA)
  Receive Date: 20240524
  Receipt Date: 20240524
  Transmission Date: 20240715
  Serious: Yes (Other)
  Sender: FDA-Public Use
  Company Number: CA-SANDOZ-SDZ2024CA049572

PATIENT
  Sex: Female

DRUGS (2)
  1. HYRIMOZ [Suspect]
     Active Substance: ADALIMUMAB-ADAZ
     Indication: Crohn^s disease
     Dosage: 40 MG, Q2W -PREFILLED PEN
     Route: 058
     Dates: start: 20240312
  2. IMODIUM [Suspect]
     Active Substance: LOPERAMIDE HYDROCHLORIDE
     Indication: Product used for unknown indication
     Dosage: 1 TABLET EVERY TIME SHE EATS
     Route: 065

REACTIONS (4)
  - Crohn^s disease [Unknown]
  - Urinary tract infection [Unknown]
  - Product availability issue [Unknown]
  - Inappropriate schedule of product administration [Unknown]
